FAERS Safety Report 25008287 (Version 3)
Quarter: 2025Q2

REPORT INFORMATION
  Report Type: Report from Study
  Country: US (occurrence: US)
  Receive Date: 20250225
  Receipt Date: 20250630
  Transmission Date: 20250717
  Serious: No
  Sender: SUNOVION
  Company Number: US-SUMITOMO PHARMA SWITZERLAND GMBH-2025SPA001189

PATIENT

DRUGS (5)
  1. ORGOVYX [Suspect]
     Active Substance: RELUGOLIX
     Indication: Prostate cancer
     Dosage: 120 MG, QD
     Route: 048
     Dates: start: 20250120
  2. CALCIUM [Concomitant]
     Active Substance: CALCIUM
     Route: 065
  3. PREDNISONE [Concomitant]
     Active Substance: PREDNISONE
     Route: 065
  4. VITAMIN D3 [Concomitant]
     Active Substance: CHOLECALCIFEROL
     Route: 065
  5. YONSA [Concomitant]
     Active Substance: ABIRATERONE ACETATE
     Route: 065

REACTIONS (5)
  - Peripheral swelling [Unknown]
  - Hot flush [Unknown]
  - Arthralgia [Unknown]
  - Fatigue [Unknown]
  - Incorrect dose administered [Unknown]
